FAERS Safety Report 8696114 (Version 3)
Quarter: 2013Q4

REPORT INFORMATION
  Report Type: Spontaneous
  Country: US (occurrence: US)
  Receive Date: 20120801
  Receipt Date: 20131031
  Transmission Date: 20140711
  Serious: No
  Sender: FDA-Public Use
  Company Number: US-009507513-2012SP033084

PATIENT
  Sex: Female
  Weight: 110.22 kg

DRUGS (3)
  1. IMPLANON [Suspect]
     Indication: CONTRACEPTION
     Dosage: UNK
     Dates: start: 20120125, end: 20120613
  2. ADVIL [Concomitant]
  3. TYLENOL [Concomitant]

REACTIONS (2)
  - Muscle spasms [Unknown]
  - Nausea [Unknown]
